FAERS Safety Report 10363644 (Version 1)
Quarter: 2014Q3

REPORT INFORMATION
  Report Type: Spontaneous
  Country: DE (occurrence: DE)
  Receive Date: 20140805
  Receipt Date: 20140805
  Transmission Date: 20150326
  Serious: Yes (Congenital Anomaly)
  Sender: FDA-Public Use
  Company Number: DE-TEVA-497905GER

PATIENT
  Age: 1 Day
  Sex: Male
  Weight: 3.5 kg

DRUGS (5)
  1. VIGANTOLETTEN [Concomitant]
     Active Substance: CHOLECALCIFEROL
     Route: 064
  2. RENNIE [Concomitant]
     Active Substance: MAGNESIUM CARBONATE
     Route: 064
  3. METFORMIN [Suspect]
     Active Substance: METFORMIN HYDROCHLORIDE
     Route: 064
  4. BASALINSULIN [Concomitant]
     Route: 064
  5. FEMIBION SCHWANGERSCHAFT 1 [Concomitant]
     Route: 064

REACTIONS (1)
  - Eyelid ptosis congenital [Unknown]

NARRATIVE: CASE EVENT DATE: 20130628
